FAERS Safety Report 22227486 (Version 1)
Quarter: 2023Q2

REPORT INFORMATION
  Report Type: Spontaneous
  Country: US (occurrence: None)
  Receive Date: 20230417
  Receipt Date: 20230417
  Transmission Date: 20230722
  Serious: No
  Sender: FDA-Public Use
  Company Number: None

PATIENT
  Sex: Female

DRUGS (1)
  1. SOFOSBUVIR AND VELPATASVIR [Suspect]
     Active Substance: SOFOSBUVIR\VELPATASVIR
     Dosage: OTHER QUANTITY : 400-100MG;?FREQUENCY : DAILY;?
     Route: 048

REACTIONS (14)
  - Amnesia [None]
  - Nausea [None]
  - Fatigue [None]
  - Asthenia [None]
  - Pruritus [None]
  - Migraine [None]
  - Dyspnoea [None]
  - Mouth swelling [None]
  - Swelling face [None]
  - Abdominal pain upper [None]
  - Chromaturia [None]
  - Dysphagia [None]
  - Discoloured vomit [None]
  - Yellow skin [None]
